FAERS Safety Report 6616849-0 (Version None)
Quarter: 2010Q1

REPORT INFORMATION
  Report Type: 
  Country: None (occurrence: None)
  Receive Date: 20100305
  Receipt Date: 20100106
  Transmission Date: 20100710
  Serious: Yes (Other)
  Sender: FDA-Public Use
  Company Number: US-AMGEN-QUU395508

PATIENT
  Age: 60 Year
  Sex: Male

DRUGS (3)
  1. NEUPOGEN [Suspect]
     Indication: NEUTROPENIA
     Dates: start: 20091201
  2. PEGASYS [Suspect]
     Route: 058
     Dates: start: 20090911
  3. COPEGUS [Suspect]
     Route: 048
     Dates: start: 20090911

REACTIONS (5)
  - BONE PAIN [None]
  - DIZZINESS [None]
  - NEUTROPHIL COUNT DECREASED [None]
  - TINNITUS [None]
  - WHITE BLOOD CELL COUNT DECREASED [None]
